FAERS Safety Report 4866165-2 (Version None)
Quarter: 2005Q4

REPORT INFORMATION
  Report Type: 
  Country: None (occurrence: None)
  Receive Date: 20051221
  Receipt Date: 20051216
  Transmission Date: 20060501
  Serious: Yes (Hospitalization)
  Sender: FDA-Public Use
  Company Number: 2003187657US

PATIENT
  Age: 78 Year
  Sex: Male
  Weight: 80.7403 kg

DRUGS (9)
  1. CAMPTOSAR [Suspect]
     Indication: COLORECTAL CANCER METASTATIC
     Dosage: CYCLIC EVERY 3 WEEKS (250 MG/M*2, 1 IN 3 WK), INTRAVENOUS
     Route: 042
     Dates: start: 20031104, end: 20031120
  2. BLINDED THERAPY (BLINDED THERAPY) [Suspect]
     Indication: COLORECTAL CANCER METASTATIC
     Dosage: (2 IN 1 D), ORAL
     Route: 048
     Dates: start: 20031104, end: 20031120
  3. CAPECITABINE (CAPECITABINE) [Suspect]
     Dosage: 4000MG DAILY CYCLE 1 (1000 MG/M*2, ON DAYS 1-14 OF CYCLE), ORAL
     Route: 048
  4. TENORETIC 100 [Concomitant]
  5. TENORMIN [Concomitant]
  6. ACCUPRIL [Concomitant]
  7. ASPIRIN [Concomitant]
  8. ZOFRAN [Concomitant]
  9. LOPERAMIDE HCL [Concomitant]

REACTIONS (10)
  - BLOOD GLUCOSE INCREASED [None]
  - DEHYDRATION [None]
  - DIARRHOEA [None]
  - ELECTROLYTE IMBALANCE [None]
  - FLUID OVERLOAD [None]
  - HAEMOGLOBIN DECREASED [None]
  - OEDEMA [None]
  - PROTEIN TOTAL DECREASED [None]
  - SMALL INTESTINAL OBSTRUCTION [None]
  - WHITE BLOOD CELL COUNT DECREASED [None]
